FAERS Safety Report 9432907 (Version 2)
Quarter: 2014Q1

REPORT INFORMATION
  Report Type: Report from Study
  Country: CA (occurrence: CA)
  Receive Date: 20130731
  Receipt Date: 20140122
  Transmission Date: 20141002
  Serious: Yes (Other)
  Sender: FDA-Public Use
  Company Number: CA-JNJFOC-20130407090

PATIENT
  Sex: Female
  Weight: 109 kg

DRUGS (11)
  1. REMICADE [Suspect]
     Indication: RHEUMATOID ARTHRITIS
     Dosage: THE PATIENT HAD APPROXIAMTELY RECEIVED A TOTAL OF 13 INFLIXIMAB INFUSIONS
     Route: 042
     Dates: start: 20120307
  2. ELAVIL [Concomitant]
     Route: 048
  3. PREDNISONE [Concomitant]
     Indication: MUSCULOSKELETAL STIFFNESS
     Route: 065
  4. PREDNISONE [Concomitant]
     Indication: MUSCULOSKELETAL STIFFNESS
     Route: 065
     Dates: start: 20130529
  5. CABERGOLINE [Concomitant]
     Dosage: 0.5 MG TWICE A WEEK
     Route: 048
  6. TECTA [Concomitant]
     Route: 065
  7. CIPRODEX [Concomitant]
     Route: 065
  8. MORPHINE [Concomitant]
     Indication: ARTHRALGIA
     Dosage: INITIATED LESSTHAN OR EQUAL TO 3 YEARS PRIOR TO THE DATE OF THIS REPORT.
     Route: 048
  9. FOLIC ACID [Concomitant]
     Route: 048
  10. METHOTREXATE [Concomitant]
     Route: 065
  11. CIPRALEX [Concomitant]
     Route: 065

REACTIONS (1)
  - Rheumatoid arthritis [Recovered/Resolved]
